FAERS Safety Report 9155809 (Version 1)
Quarter: 2013Q1

REPORT INFORMATION
  Report Type: Spontaneous
  Country: CA (occurrence: CA)
  Receive Date: 20130311
  Receipt Date: 20130311
  Transmission Date: 20140127
  Serious: Yes (Other)
  Sender: FDA-Public Use
  Company Number: CA-AMGEN-CANSP2013015840

PATIENT
  Sex: Female
  Weight: 103 kg

DRUGS (9)
  1. ENBREL [Suspect]
     Indication: PSORIASIS
     Dosage: UNK
  2. ENBREL [Suspect]
     Indication: PSORIATIC ARTHROPATHY
  3. ADALIMUMAB [Concomitant]
     Dosage: UNK
  4. INFLIXIMAB [Concomitant]
     Dosage: UNK
  5. LEFLUNOMIDE [Concomitant]
     Dosage: UNK
  6. USTEKINUMAB [Concomitant]
     Dosage: UNK
  7. PREDNISOLONE [Concomitant]
  8. SULFASALAZINE [Concomitant]
     Dosage: UNK
  9. METHOTREXATE [Concomitant]
     Dosage: UNK

REACTIONS (5)
  - Skin reaction [Unknown]
  - Lupus-like syndrome [Unknown]
  - Psoriatic arthropathy [Unknown]
  - Drug resistance [Unknown]
  - Psoriasis [Unknown]
